FAERS Safety Report 8028518-3 (Version None)
Quarter: 2012Q1

REPORT INFORMATION
  Report Type: 
  Country: None (occurrence: None)
  Receive Date: 20120104
  Receipt Date: 20111226
  Transmission Date: 20120608
  Serious: Yes (Other)
  Sender: FDA-Public Use
  Company Number: 2011SP059878

PATIENT
  Age: 81 Year
  Sex: Female

DRUGS (5)
  1. MIRTAZAPINE [Suspect]
     Dosage: 30 MG; QD; PO
     Route: 048
  2. PAROXETINE HYDROCHLORIDE [Concomitant]
  3. CLOMIPRAMINE HYDROCHLORIDE [Concomitant]
  4. LITHIUM CARBONATE [Suspect]
     Dosage: PO
     Route: 048
  5. MIANSERIN HYDROCHLORIDE [Concomitant]

REACTIONS (10)
  - ANXIETY [None]
  - SICK SINUS SYNDROME [None]
  - INSOMNIA [None]
  - BRADYCARDIA [None]
  - DEPRESSED MOOD [None]
  - DECREASED APPETITE [None]
  - HYPOCHONDRIASIS [None]
  - NODAL RHYTHM [None]
  - LOSS OF CONSCIOUSNESS [None]
  - VISUAL IMPAIRMENT [None]
